FAERS Safety Report 15035965 (Version 6)
Quarter: 2018Q3

REPORT INFORMATION
  Report Type: Report from Study
  Country: US (occurrence: US)
  Receive Date: 20180620
  Receipt Date: 20180816
  Transmission Date: 20181010
  Serious: Yes (Hospitalization)
  Sender: FDA-Public Use
  Company Number: PHHO2018US007309

PATIENT
  Age: 65 Year
  Sex: Female
  Weight: 65.85 kg

DRUGS (25)
  1. ASPIRIN. [Concomitant]
     Active Substance: ASPIRIN
     Indication: CARDIOVASCULAR DISORDER
     Dosage: 81 MG, QD
     Route: 048
     Dates: start: 20150101, end: 20180521
  2. POTASSIUM CHLORIDE. [Concomitant]
     Active Substance: POTASSIUM CHLORIDE
     Indication: HYPOKALAEMIA
     Dosage: 20 MEQ, QD
     Route: 048
     Dates: start: 20170627
  3. NEURONTIN [Concomitant]
     Active Substance: GABAPENTIN
     Dosage: 600 MG, BEDTIME
     Route: 048
     Dates: start: 20180110
  4. DEXAMETHASONE. [Concomitant]
     Active Substance: DEXAMETHASONE
     Indication: PREMEDICATION
     Dosage: 4 MG, (PRIOR TO DOSING AZD1775 ON DAYS 1?3 , OLD STUDY)
     Route: 065
     Dates: start: 20170830, end: 20171015
  5. MEGACE [Concomitant]
     Active Substance: MEGESTROL ACETATE
     Indication: DECREASED APPETITE
     Dosage: 800 MG, QD
     Route: 048
     Dates: start: 20180416
  6. KEFLEX [Concomitant]
     Active Substance: CEPHALEXIN
     Indication: HAEMATURIA
     Dosage: 500 MG, BID FOR 10 DAYS
     Route: 048
     Dates: start: 20180410, end: 20180420
  7. COMPAZINE [Concomitant]
     Active Substance: PROCHLORPERAZINE MALEATE
     Indication: NAUSEA
     Dosage: 10 MG, Q8H, TAB, PRN
     Route: 048
     Dates: start: 20171213
  8. XARELTO [Concomitant]
     Active Substance: RIVAROXABAN
     Indication: DEEP VEIN THROMBOSIS
     Dosage: 15 MG, BID
     Route: 048
     Dates: start: 20180521, end: 20180610
  9. TOPOTECAN HYDROCHLORIDE. [Suspect]
     Active Substance: TOPOTECAN HYDROCHLORIDE
     Indication: OVARIAN CANCER
     Dosage: 3.25 MG, UNK
     Route: 048
     Dates: start: 20171206
  10. DEXAMETHASONE. [Concomitant]
     Active Substance: DEXAMETHASONE
     Dosage: 10 MG, (1 PRIOR TO DOSING LCL161)
     Route: 065
     Dates: start: 20171206
  11. ZOFRAN [Concomitant]
     Active Substance: ONDANSETRON HYDROCHLORIDE
     Indication: PREMEDICATION
     Dosage: 4 MG, (1 PRIOR TO DOSING AZD1775 ON DAYS 1?3, OLD STUDY)
     Route: 065
     Dates: start: 20170830, end: 20171015
  12. ATIVAN [Concomitant]
     Active Substance: LORAZEPAM
     Indication: NAUSEA
     Dosage: 1 MG, Q8H/PEN, TAB
     Route: 048
     Dates: start: 20171213
  13. CIPRO [Concomitant]
     Active Substance: CIPROFLOXACIN HYDROCHLORIDE
     Indication: URINARY TRACT INFECTION
     Dosage: 500 MG, BID, TAB, 5 DAYS
     Route: 048
     Dates: start: 20180501, end: 20180506
  14. LORTAB [Concomitant]
     Active Substance: ACETAMINOPHEN\HYDROCODONE BITARTRATE
     Indication: PAIN IN EXTREMITY
     Dosage: 1 DF, Q4H (1?2 TAB, PRN)
     Route: 048
     Dates: start: 20170606, end: 20171206
  15. PERCOCET [Concomitant]
     Active Substance: ACETAMINOPHEN\OXYCODONE HYDROCHLORIDE
     Indication: PAIN
     Dosage: 1 DF, Q6H PRN, 10/325
     Route: 048
     Dates: end: 20180109
  16. XARELTO [Concomitant]
     Active Substance: RIVAROXABAN
     Dosage: 20 MG, QD
     Route: 048
     Dates: start: 20180611
  17. LCL161 [Suspect]
     Active Substance: INVESTIGATIONAL PRODUCT
     Indication: OVARIAN CANCER
     Dosage: 900 MG, QW
     Route: 048
     Dates: start: 20171206
  18. ALEVE [Concomitant]
     Active Substance: NAPROXEN SODIUM
     Indication: MYALGIA
     Dosage: 2 DF, Q12H (1?2 TAB)PRN
     Route: 048
     Dates: start: 2016
  19. ZOFRAN [Concomitant]
     Active Substance: ONDANSETRON HYDROCHLORIDE
     Indication: NAUSEA
     Dosage: 16 MG, (1 PRIRO TO DOSING LCL161 AND EVERY 8 HRS AS NEEDED FOR NAUSEA)
     Route: 065
     Dates: start: 20171206
  20. BENADRYL [Concomitant]
     Active Substance: DIPHENHYDRAMINE HYDROCHLORIDE
     Indication: PREMEDICATION
     Dosage: 25 MG, (1 PRIOR TO DOSING OF LCL161)
     Route: 065
     Dates: start: 20171206
  21. MARINOL (ALLOPURINOL) [Concomitant]
     Active Substance: ALLOPURINOL
     Indication: DECREASED APPETITE
     Dosage: 5 MG, Q12H, PRN WITH MEALS
     Route: 048
     Dates: start: 20180110, end: 20180416
  22. NEURONTIN [Concomitant]
     Active Substance: GABAPENTIN
     Indication: PAIN
     Dosage: 300 MG, (BEDTIME 3 X DAYS, ESCALTE TO 2 TABS)
     Route: 048
     Dates: start: 20171206, end: 20180109
  23. MAGNESIUM OXIDE. [Concomitant]
     Active Substance: MAGNESIUM OXIDE
     Indication: SUPPLEMENTATION THERAPY
     Dosage: 400 MG, BID
     Route: 048
     Dates: start: 20180430
  24. RANITIDINE. [Concomitant]
     Active Substance: RANITIDINE
     Indication: PREMEDICATION
     Dosage: 50 MG, (1 PRIOR TO DOSING LCL161)
     Route: 065
     Dates: start: 20171206
  25. BACTRIM [Concomitant]
     Active Substance: SULFAMETHOXAZOLE\TRIMETHOPRIM
     Indication: URINARY TRACT INFECTION
     Dosage: 1 DF, BID, 400/80 FOR 5 DAYS
     Route: 048
     Dates: start: 20180302, end: 20180307

REACTIONS (2)
  - Nausea [Not Recovered/Not Resolved]
  - Dehydration [Recovered/Resolved]

NARRATIVE: CASE EVENT DATE: 20180604
